FAERS Safety Report 6147626-5 (Version None)
Quarter: 2009Q2

REPORT INFORMATION
  Report Type: 
  Country: None (occurrence: None)
  Receive Date: 20090402
  Receipt Date: 20090319
  Transmission Date: 20091009
  Serious: Yes (Death)
  Sender: FDA-Public Use
  Company Number: BAYER CASE ID: 200910304BYL

PATIENT
  Age: 53 Year
  Sex: Male

DRUGS (5)
  1. FLUDARA [Suspect]
     Indication: CHRONIC LYMPHOCYTIC LEUKAEMIA
     Dosage: 40 MG ORAL, 60 MG, ORAL
     Route: 048
     Dates: start: 20080613, end: 20080617
  2. FLUDARA [Suspect]
     Indication: CHRONIC LYMPHOCYTIC LEUKAEMIA
     Dosage: 40 MG ORAL, 60 MG, ORAL
     Route: 048
     Dates: start: 20080711, end: 20080715
  3. FLUDARA [Suspect]
     Indication: CHRONIC LYMPHOCYTIC LEUKAEMIA
     Dosage: 40 MG ORAL, 60 MG, ORAL
     Route: 048
     Dates: start: 20080808, end: 20080812
  4. FLUDARA [Suspect]
     Indication: CHRONIC LYMPHOCYTIC LEUKAEMIA
     Dosage: 40 MG ORAL, 60 MG, ORAL
     Route: 048
     Dates: start: 20080905, end: 20080909
  5. CYCLOPHOSPHAMIDE [Concomitant]

REACTIONS (3)
  - CONDITION AGGRAVATED [None]
  - HEPATITIS B [None]
  - HEPATITIS FULMINANT [None]
